FAERS Safety Report 10729091 (Version 1)
Quarter: 2015Q1

REPORT INFORMATION
  Report Type: Spontaneous
  Country: US (occurrence: None)
  Receive Date: 20150120
  Receipt Date: 20150120
  Transmission Date: 20150721
  Serious: No
  Sender: FDA-Public Use
  Company Number: None

PATIENT
  Age: 50 Year
  Sex: Female
  Weight: 79.38 kg

DRUGS (4)
  1. SYNTHROID [Concomitant]
     Active Substance: LEVOTHYROXINE SODIUM
  2. PICATO GEL [Suspect]
     Active Substance: INGENOL MEBUTATE
     Indication: ACTINIC KERATOSIS
     Dosage: 3 DOSES ONE TIME @ BEDTIME FOR 3DAY ON THE SKIN. TOPICAL.
     Route: 061
     Dates: start: 20140827, end: 20140827
  3. OMEPRAZOLE. [Concomitant]
     Active Substance: OMEPRAZOLE
  4. BUPROPION [Concomitant]
     Active Substance: BUPROPION

REACTIONS (4)
  - Application site swelling [None]
  - Application site pain [None]
  - Application site erythema [None]
  - Application site vesicles [None]

NARRATIVE: CASE EVENT DATE: 20140824
